FAERS Safety Report 20590342 (Version 1)
Quarter: 2022Q1

REPORT INFORMATION
  Report Type: Spontaneous
  Country: US (occurrence: None)
  Receive Date: 20220313
  Receipt Date: 20220313
  Transmission Date: 20220424
  Serious: No
  Sender: FDA-Public Use
  Company Number: None

PATIENT
  Age: 37 Year
  Sex: Female
  Weight: 54 kg

DRUGS (4)
  1. BUPROPION [Suspect]
     Active Substance: BUPROPION
     Indication: Antidepressant therapy
     Dosage: OTHER QUANTITY : 1 TABLET(S);?
     Route: 048
  2. LEVOTHYROXINE [Concomitant]
     Active Substance: LEVOTHYROXINE
  3. SKYLA [Concomitant]
     Active Substance: LEVONORGESTREL
  4. CUROLOGY TOPICAL ACNE TREATMENT (AZELAIC ACID, TRETINOIN, ZINC SULFIDE [Concomitant]

REACTIONS (3)
  - Acne cystic [None]
  - Acne [None]
  - Acne [None]

NARRATIVE: CASE EVENT DATE: 20211217
